FAERS Safety Report 25422719 (Version 1)
Quarter: 2025Q2

REPORT INFORMATION
  Report Type: Report from Study
  Country: US (occurrence: US)
  Receive Date: 20250611
  Receipt Date: 20250611
  Transmission Date: 20250716
  Serious: Yes (Other)
  Sender: EISAI
  Company Number: US-Eisai-EC-2025-190632

PATIENT
  Age: 87 Year
  Sex: Female
  Weight: 58.5 kg

DRUGS (7)
  1. LECANEMAB [Suspect]
     Active Substance: LECANEMAB
     Indication: Dementia Alzheimer^s type
     Dates: start: 20231011, end: 20240228
  2. LECANEMAB [Suspect]
     Active Substance: LECANEMAB
     Dates: start: 20240313, end: 20240313
  3. ROSUVASTATIN [Concomitant]
     Active Substance: ROSUVASTATIN
     Dates: start: 200912
  4. LISINOPRIL [Concomitant]
     Active Substance: LISINOPRIL
     Dates: start: 201109
  5. DONEPEZIL [Concomitant]
     Active Substance: DONEPEZIL
     Indication: Amnesia
     Dates: start: 202206
  6. MEMANTINE [Concomitant]
     Active Substance: MEMANTINE
     Indication: Amnesia
     Dates: start: 202206
  7. SOLIFENACIN [Concomitant]
     Active Substance: SOLIFENACIN
     Indication: Pollakiuria
     Dates: start: 202207

REACTIONS (1)
  - Superficial siderosis of central nervous system [Recovered/Resolved]

NARRATIVE: CASE EVENT DATE: 20240313
